APPROVED DRUG PRODUCT: WELLBUTRIN SR
Active Ingredient: BUPROPION HYDROCHLORIDE
Strength: 200MG
Dosage Form/Route: TABLET, EXTENDED RELEASE;ORAL
Application: N020358 | Product #004 | TE Code: AB1
Applicant: GLAXOSMITHKLINE
Approved: Jun 14, 2002 | RLD: Yes | RS: Yes | Type: RX